FAERS Safety Report 17070743 (Version 1)
Quarter: 2019Q4

REPORT INFORMATION
  Report Type: Spontaneous
  Country: US (occurrence: US)
  Receive Date: 20191025
  Receipt Date: 20191025
  Transmission Date: 20200122
  Serious: No
  Sender: FDA-Public Use
  Company Number: None

PATIENT
  Age: 56 Year
  Sex: Female

DRUGS (13)
  1. FOIIC ACID TAB 1000MCG [Concomitant]
  2. GABAPENTIN TAB 600MG [Concomitant]
  3. ALENDRONATE [Concomitant]
     Active Substance: ALENDRONATE SODIUM
  4. HUMIRA [Suspect]
     Active Substance: ADALIMUMAB
     Dosage: ?          OTHER DOSE:40MG/0.4ML;OTHER FREQUENCY:1X EVERY 2 WEEKS;?
     Route: 058
     Dates: start: 20181211
  5. PRAVASTATIN TAB 40MG [Concomitant]
  6. DULOXETINE CAP 30MG [Concomitant]
  7. TIZANIDINE TAB 40MG [Concomitant]
  8. BELBUCA MIS 900 MCG [Concomitant]
  9. HYDROCO/APAP TAB 10-325MG [Concomitant]
  10. LISINOPRIL TAB 40MG [Concomitant]
  11. SERTRALINE [Concomitant]
     Active Substance: SERTRALINE HYDROCHLORIDE
  12. PANTOPRAZOLE TAB 40 MG [Concomitant]
  13. PREDNISONE TAB 5MG [Concomitant]
     Active Substance: PREDNISONE

REACTIONS (1)
  - Condition aggravated [None]

NARRATIVE: CASE EVENT DATE: 20191001
